FAERS Safety Report 19885764 (Version 1)
Quarter: 2021Q3

REPORT INFORMATION
  Report Type: Report from Study
  Country: CA (occurrence: CA)
  Receive Date: 20210927
  Receipt Date: 20210927
  Transmission Date: 20211014
  Serious: Yes (Other)
  Sender: FDA-Public Use
  Company Number: CA-BIOGEN-2021BI01050935

PATIENT
  Sex: Female

DRUGS (2)
  1. NORTRIPTYLINE [Concomitant]
     Active Substance: NORTRIPTYLINE
     Indication: PRODUCT USED FOR UNKNOWN INDICATION
     Route: 065
  2. TECFIDERA [Suspect]
     Active Substance: DIMETHYL FUMARATE
     Indication: MULTIPLE SCLEROSIS
     Route: 048
     Dates: start: 20150608

REACTIONS (7)
  - Sleep apnoea syndrome [Unknown]
  - Deafness bilateral [Unknown]
  - Arthritis [Unknown]
  - Anxiety [Unknown]
  - Pain [Unknown]
  - Panic attack [Unknown]
  - Weight increased [Unknown]
